FAERS Safety Report 6538708-4 (Version None)
Quarter: 2010Q1

REPORT INFORMATION
  Report Type: 
  Country: None (occurrence: None)
  Receive Date: 20100113
  Receipt Date: 20100113
  Transmission Date: 20100710
  Serious: No
  Sender: FDA-Public Use
  Company Number: None

PATIENT
  Age: 58 Year
  Sex: Female
  Weight: 71.2147 kg

DRUGS (1)
  1. MINOXIDIL [Suspect]
     Indication: ALOPECIA
     Dosage: 1/2 ML 2X DAILY 2 X DAY TO SCALP
     Dates: start: 20091211, end: 20091226

REACTIONS (5)
  - ERYTHEMA [None]
  - MELANOCYTIC NAEVUS [None]
  - PRURITUS [None]
  - SKIN DISCOLOURATION [None]
  - SWELLING FACE [None]
